FAERS Safety Report 19482268 (Version 6)
Quarter: 2023Q4

REPORT INFORMATION
  Report Type: Spontaneous
  Country: US (occurrence: US)
  Receive Date: 20210701
  Receipt Date: 20231218
  Transmission Date: 20240109
  Serious: Yes (Other)
  Sender: FDA-Public Use
  Company Number: US-PFIZER INC-2021382668

PATIENT
  Age: 80 Year
  Sex: Female

DRUGS (1)
  1. XELJANZ [Suspect]
     Active Substance: TOFACITINIB CITRATE
     Dosage: 5 MG

REACTIONS (4)
  - Neoplasm recurrence [Not Recovered/Not Resolved]
  - Rheumatoid arthritis [Unknown]
  - Confusional state [Unknown]
  - Movement disorder [Unknown]

NARRATIVE: CASE EVENT DATE: 20220101
